FAERS Safety Report 10706817 (Version 3)
Quarter: 2015Q1

REPORT INFORMATION
  Report Type: Spontaneous
  Country: BR (occurrence: BR)
  Receive Date: 20150113
  Receipt Date: 20150324
  Transmission Date: 20150721
  Serious: Yes (Hospitalization, Other)
  Sender: FDA-Public Use
  Company Number: BR-PFIZER INC-2014319498

PATIENT
  Age: 79 Year
  Sex: Female
  Weight: 68 kg

DRUGS (1)
  1. SUTENT [Suspect]
     Active Substance: SUNITINIB MALATE
     Indication: RENAL CELL CARCINOMA
     Dosage: 50 MG, 1 TABLET (AS REPORTED) DAILY, CYCLIC 4X2
     Route: 048
     Dates: start: 20141028

REACTIONS (10)
  - Immune system disorder [Unknown]
  - Yellow skin [Not Recovered/Not Resolved]
  - Palmar-plantar erythrodysaesthesia syndrome [Not Recovered/Not Resolved]
  - Swelling [Unknown]
  - Skin fissures [Recovered/Resolved]
  - Malaise [Unknown]
  - Disease progression [Not Recovered/Not Resolved]
  - Asthenia [Unknown]
  - Renal cell carcinoma [Not Recovered/Not Resolved]
  - Rash macular [Not Recovered/Not Resolved]

NARRATIVE: CASE EVENT DATE: 2014
